FAERS Safety Report 10362456 (Version 2)
Quarter: 2014Q3

REPORT INFORMATION
  Report Type: Report from Study
  Country: US (occurrence: US)
  Receive Date: 20140805
  Receipt Date: 20140805
  Transmission Date: 20150326
  Serious: No
  Sender: FDA-Public Use
  Company Number: US-ALEXION-A201102300

PATIENT

DRUGS (1)
  1. SOLIRIS [Suspect]
     Active Substance: ECULIZUMAB
     Indication: PAROXYSMAL NOCTURNAL HAEMOGLOBINURIA
     Dosage: UNK

REACTIONS (6)
  - Musculoskeletal pain [Unknown]
  - Fatigue [Unknown]
  - Dyspnoea [Unknown]
  - Dysphagia [Unknown]
  - Abdominal pain [Unknown]
  - Haemoglobinuria [Unknown]
